FAERS Safety Report 21347987 (Version 2)
Quarter: 2022Q3

REPORT INFORMATION
  Report Type: Spontaneous
  Country: US (occurrence: US)
  Receive Date: 20220919
  Receipt Date: 20220929
  Transmission Date: 20221027
  Serious: No
  Sender: FDA-Public Use
  Company Number: US-GSK-US2022AMR131427

PATIENT
  Age: 81 Year
  Sex: Male

DRUGS (1)
  1. LAMOTRIGINE [Suspect]
     Active Substance: LAMOTRIGINE
     Indication: Seizure
     Dosage: UNK

REACTIONS (3)
  - Rash [Recovered/Resolved]
  - Fatigue [Unknown]
  - Tremor [Unknown]
